FAERS Safety Report 5913109-8 (Version None)
Quarter: 2008Q4

REPORT INFORMATION
  Report Type: 
  Country: None (occurrence: None)
  Receive Date: 20081008
  Receipt Date: 20081008
  Transmission Date: 20090506
  Serious: Yes (Hospitalization, Other)
  Sender: FDA-Public Use
  Company Number: None

PATIENT
  Age: 49 Year
  Sex: Female
  Weight: 43.0917 kg

DRUGS (1)
  1. AVELOX [Suspect]
     Dosage: 400MG 1 X DAILY ORAL
     Route: 048
     Dates: start: 20080919, end: 20080922

REACTIONS (3)
  - ASTHENIA [None]
  - BURNING SENSATION [None]
  - PARAESTHESIA [None]
